FAERS Safety Report 4672906-X (Version None)
Quarter: 2005Q2

REPORT INFORMATION
  Report Type: 
  Country: None (occurrence: None)
  Receive Date: 20050523
  Receipt Date: 20050511
  Transmission Date: 20051028
  Serious: Yes (Disabling)
  Sender: FDA-Public Use
  Company Number: HQWYE005414SEP04

PATIENT
  Age: 60 Year
  Sex: Female
  Weight: 77.18 kg

DRUGS (2)
  1. EFFEXOR XR [Suspect]
     Indication: ANXIETY
     Dosage: 75 MG 1X PER 1 DAY ORAL
     Route: 048
     Dates: end: 20040301
  2. EFFEXOR XR [Suspect]
     Indication: DEPRESSION
     Dosage: 75 MG 1X PER 1 DAY ORAL
     Route: 048
     Dates: end: 20040301

REACTIONS (21)
  - ABDOMINAL PAIN UPPER [None]
  - CARDIAC VALVE DISEASE [None]
  - CHEST PAIN [None]
  - DIARRHOEA [None]
  - DIFFICULTY IN WALKING [None]
  - DRUG WITHDRAWAL SYNDROME [None]
  - DYSPNOEA [None]
  - FLUSHING [None]
  - HOT FLUSH [None]
  - HYPERHIDROSIS [None]
  - HYPERTENSION [None]
  - INCONTINENCE [None]
  - MUSCLE SPASMS [None]
  - MUSCULOSKELETAL STIFFNESS [None]
  - NAUSEA [None]
  - PAIN IN EXTREMITY [None]
  - PARAESTHESIA [None]
  - UNEVALUABLE EVENT [None]
  - WEIGHT DECREASED [None]
  - WEIGHT INCREASED [None]
  - WEIGHT LOSS POOR [None]
